FAERS Safety Report 4750931-8 (Version None)
Quarter: 2005Q3

REPORT INFORMATION
  Report Type: 
  Country: None (occurrence: None)
  Receive Date: 20050818
  Receipt Date: 20050808
  Transmission Date: 20060218
  Serious: Yes (Death)
  Sender: FDA-Public Use
  Company Number: US-2005-004899

PATIENT
  Age: 38 Year
  Sex: Male

DRUGS (3)
  1. BETASERON [Suspect]
     Indication: SECONDARY PROGRESSIVE MULTIPLE SCLEROSIS
     Dosage: 8 MIU, 1X/DAY, SUBCUTANEOUS
     Route: 058
     Dates: start: 20020801, end: 20040101
  2. COPAXONE [Concomitant]
  3. MIDRIN (DICHLORALPHENAZONE, ISOMETHEPTENE) [Concomitant]

REACTIONS (2)
  - PROGRESSIVE MULTIPLE SCLEROSIS [None]
  - RESPIRATORY DISORDER [None]
